FAERS Safety Report 6660353-0 (Version None)
Quarter: 2010Q1

REPORT INFORMATION
  Report Type: 
  Country: None (occurrence: None)
  Receive Date: 20100331
  Receipt Date: 20100322
  Transmission Date: 20100710
  Serious: Yes (Other)
  Sender: FDA-Public Use
  Company Number: US-JNJFOC-20100201377

PATIENT
  Sex: Male
  Weight: 83.46 kg

DRUGS (4)
  1. DURAGESIC-100 [Suspect]
     Indication: BACK PAIN
     Route: 062
  2. DURAGESIC-100 [Suspect]
     Dosage: ONE 50 UG/HR + ONE 25 UG/HR PATCH
     Route: 062
  3. DURAGESIC-100 [Suspect]
     Route: 062
  4. OXYCODONE [Concomitant]
     Indication: PAIN
     Dosage: TWICE IN 1 DAY AS REQUIRED
     Route: 048

REACTIONS (7)
  - BREAKTHROUGH PAIN [None]
  - DRUG PRESCRIBING ERROR [None]
  - HYPOAESTHESIA [None]
  - INAPPROPRIATE SCHEDULE OF DRUG ADMINISTRATION [None]
  - INTERVERTEBRAL DISC DEGENERATION [None]
  - LUMBAR SPINAL STENOSIS [None]
  - RHINITIS [None]
